FAERS Safety Report 12600171 (Version 2)
Quarter: 2016Q3

REPORT INFORMATION
  Report Type: Spontaneous
  Country: JP (occurrence: JP)
  Receive Date: 20160727
  Receipt Date: 20160801
  Transmission Date: 20161109
  Serious: Yes (Other)
  Sender: FDA-Public Use
  Company Number: PHJP2016JP020944

PATIENT
  Age: 34 Year
  Sex: Female
  Weight: 33 kg

DRUGS (6)
  1. FENTANYL. [Suspect]
     Active Substance: FENTANYL
     Indication: BACK PAIN
     Dosage: 135 UG/DOSE, UNK
     Route: 040
  2. VOLTAREN SUP [Suspect]
     Active Substance: DICLOFENAC SODIUM
     Indication: BACK PAIN
  3. FENTANYL. [Suspect]
     Active Substance: FENTANYL
     Indication: ABDOMINAL PAIN LOWER
     Dosage: 135 UG/HR, UNK
     Route: 041
  4. FENTANYL. [Suspect]
     Active Substance: FENTANYL
     Dosage: 75 UG/HR, UNK
     Route: 042
  5. LIDOCAINE HYDROCHLORIDE. [Concomitant]
     Active Substance: LIDOCAINE HYDROCHLORIDE
     Indication: PRODUCT USED FOR UNKNOWN INDICATION
     Dosage: 5 ML, UNK
     Route: 065
  6. VOLTAREN SUP [Suspect]
     Active Substance: DICLOFENAC SODIUM
     Indication: ABDOMINAL PAIN LOWER
     Dosage: 75 MG, QD
     Route: 054

REACTIONS (6)
  - Gastrointestinal haemorrhage [Unknown]
  - Shock [Unknown]
  - Anaemia [Unknown]
  - Faeces discoloured [Unknown]
  - Therapeutic response decreased [Unknown]
  - Duodenal ulcer [Unknown]
